FAERS Safety Report 25877682 (Version 1)
Quarter: 2025Q4

REPORT INFORMATION
  Report Type: Report from Study
  Country: EU (occurrence: EU)
  Receive Date: 20251003
  Receipt Date: 20251003
  Transmission Date: 20260118
  Serious: Yes (Death, Other)
  Sender: AUROBINDO
  Company Number: EU-TAKEDA-2025TUS081206

PATIENT

DRUGS (2)
  1. BORTEZOMIB [Suspect]
     Active Substance: BORTEZOMIB
     Indication: Neoplasm malignant
     Dosage: UNK
     Route: 065
  2. CARFILZOMIB [Suspect]
     Active Substance: CARFILZOMIB
     Indication: Neoplasm malignant
     Dosage: UNK
     Route: 065

REACTIONS (5)
  - Cardiovascular disorder [Fatal]
  - Arrhythmia [Unknown]
  - Cardiac failure [Unknown]
  - Hypertension [Unknown]
  - Embolism [Unknown]
